FAERS Safety Report 24777014 (Version 1)
Quarter: 2024Q4

REPORT INFORMATION
  Report Type: Spontaneous
  Country: US (occurrence: US)
  Receive Date: 20241226
  Receipt Date: 20241226
  Transmission Date: 20250115
  Serious: Yes (Other)
  Sender: RANBAXY
  Company Number: US-SUN PHARMACEUTICAL INDUSTRIES LTD-2024R1-486070

PATIENT
  Age: 42 Year
  Sex: Female

DRUGS (2)
  1. BUDESONIDE [Suspect]
     Active Substance: BUDESONIDE
     Indication: Asthma
     Dosage: 160 MICROGRAM, BID
     Route: 065
  2. ITRACONAZOLE [Suspect]
     Active Substance: ITRACONAZOLE
     Indication: Pulmonary histoplasmosis
     Dosage: 200 MILLIGRAM, BID
     Route: 065

REACTIONS (1)
  - Adrenal insufficiency [Unknown]
